FAERS Safety Report 8419723-2 (Version None)
Quarter: 2012Q2

REPORT INFORMATION
  Report Type: 
  Country: None (occurrence: None)
  Receive Date: 20120607
  Receipt Date: 20120604
  Transmission Date: 20120825
  Serious: Yes (Death)
  Sender: FDA-Public Use
  Company Number: PHHY2012JP047973

PATIENT
  Age: 49 Year
  Sex: Female
  Weight: 59 kg

DRUGS (15)
  1. MITOXANTRONE HYDROCHLORIDE [Suspect]
     Dosage: 15 MG, UNK
     Route: 037
  2. CARBOPLATIN [Suspect]
     Dosage: AUC 4
  3. CYCLOPHOSPHAMIDE [Suspect]
     Dosage: 400 MG/M2, UNK
  4. DOXORUBICIN HCL [Suspect]
     Dosage: 40 MG/M2, UNK
  5. PREDNISOLONE [Suspect]
     Dosage: 20 MG, UNK
     Route: 037
  6. CARBOPLATIN [Suspect]
     Dosage: AUC 5
  7. MITOMYCIN [Suspect]
     Dosage: 7 MG/M2, UNK
  8. CYTARABINE [Suspect]
     Dosage: 40 MG, UNK
     Route: 037
  9. NEDAPLATIN [Suspect]
     Dosage: 12 MG/M2, UNK
  10. IRINOTECAN HYDROCHLORIDE [Suspect]
     Dosage: 120 MG/M2, UNK
  11. DOCETAXEL [Suspect]
     Dosage: 70 MG/M2, UNK
  12. PACLITAXEL [Suspect]
     Dosage: 175 MG/M2, UNK
  13. NEDAPLATIN [Suspect]
     Dosage: 60 MG/M2, UNK
  14. EPIRUBICIN HYDROCHLORIDE [Suspect]
     Dosage: 30 MG/M2, UNK
  15. CYCLOPHOSPHAMIDE [Suspect]
     Dosage: 600 MG/M2, UNK

REACTIONS (3)
  - DRUG INEFFECTIVE [None]
  - NERVOUS SYSTEM DISORDER [None]
  - METASTASES TO CENTRAL NERVOUS SYSTEM [None]
